FAERS Safety Report 21042485 (Version 1)
Quarter: 2022Q3

REPORT INFORMATION
  Report Type: Spontaneous
  Country: SE (occurrence: SE)
  Receive Date: 20220705
  Receipt Date: 20220705
  Transmission Date: 20221026
  Serious: Yes (Death, Life-Threatening, Hospitalization, Other)
  Sender: FDA-Public Use
  Company Number: SE-ALVOGEN-2022-ALVOGEN-120603

PATIENT
  Age: 16 Year
  Sex: Female

DRUGS (2)
  1. SERTRALINE [Suspect]
     Active Substance: SERTRALINE HYDROCHLORIDE
     Indication: Anxiety
  2. RISPERIDONE [Suspect]
     Active Substance: RISPERIDONE
     Indication: Anxiety

REACTIONS (7)
  - Hyperthermia [Fatal]
  - Rhabdomyolysis [Fatal]
  - Tremor [Fatal]
  - Hyperreflexia [Fatal]
  - Hyperhidrosis [Fatal]
  - Dyskinesia [Fatal]
  - Depressed level of consciousness [Fatal]
